FAERS Safety Report 6387874-2 (Version None)
Quarter: 2009Q4

REPORT INFORMATION
  Report Type: 
  Country: None (occurrence: None)
  Receive Date: 20091005
  Receipt Date: 20090928
  Transmission Date: 20100525
  Serious: Yes (Other)
  Sender: FDA-Public Use
  Company Number: US-JNJFOC-20090908477

PATIENT
  Sex: Female
  Weight: 43.55 kg

DRUGS (8)
  1. DURAGESIC-100 [Suspect]
     Route: 062
     Dates: start: 20080101
  2. DURAGESIC-100 [Suspect]
     Route: 062
     Dates: start: 20080101
  3. DURAGESIC-100 [Suspect]
     Route: 062
     Dates: start: 20080101
  4. DURAGESIC-100 [Suspect]
     Route: 062
     Dates: start: 20080101
  5. DURAGESIC-100 [Suspect]
     Indication: PAIN
     Route: 062
     Dates: start: 20080101
  6. DIAZEPAM [Concomitant]
     Indication: MUSCLE SPASMS
     Route: 048
  7. GABAPENTIN [Concomitant]
     Indication: COORDINATION ABNORMAL
     Route: 048
  8. UNKNOWN MEDICATION [Concomitant]

REACTIONS (7)
  - APPLICATION SITE VESICLES [None]
  - JOINT RANGE OF MOTION DECREASED [None]
  - PAIN [None]
  - PRODUCT ADHESION ISSUE [None]
  - SCAR [None]
  - SKIN INFECTION [None]
  - WRONG TECHNIQUE IN DRUG USAGE PROCESS [None]
